FAERS Safety Report 18745053 (Version 1)
Quarter: 2021Q1

REPORT INFORMATION
  Report Type: Spontaneous
  Country: US (occurrence: US)
  Receive Date: 20210115
  Receipt Date: 20210115
  Transmission Date: 20210419
  Serious: Yes (Life-Threatening, Hospitalization, Other)
  Sender: FDA-Public Use
  Company Number: US-GLAXOSMITHKLINE-US2021GSK001708

PATIENT
  Age: 56 Year
  Sex: Female

DRUGS (1)
  1. ACETAMINOPHEN. [Suspect]
     Active Substance: ACETAMINOPHEN
     Indication: PRODUCT USED FOR UNKNOWN INDICATION
     Dosage: UNK

REACTIONS (28)
  - Toxicity to various agents [Unknown]
  - Hepatotoxicity [Recovering/Resolving]
  - Livedo reticularis [Recovering/Resolving]
  - Gastrointestinal wall thickening [Recovering/Resolving]
  - Bullous haemorrhagic dermatosis [Recovering/Resolving]
  - Hypercoagulation [Recovering/Resolving]
  - Acute hepatic failure [Recovering/Resolving]
  - Mental status changes [Recovering/Resolving]
  - Transaminases increased [Recovering/Resolving]
  - Shock [Recovering/Resolving]
  - Disseminated intravascular coagulation [Recovering/Resolving]
  - Epidermal necrosis [Unknown]
  - Purpura fulminans [Recovering/Resolving]
  - Dry gangrene [Unknown]
  - Purpura [Recovering/Resolving]
  - Lung consolidation [Recovering/Resolving]
  - Thrombocytopenia [Recovering/Resolving]
  - Lung opacity [Recovering/Resolving]
  - Renal cortical necrosis [Recovering/Resolving]
  - Drug level increased [Recovering/Resolving]
  - Multiple organ dysfunction syndrome [Recovering/Resolving]
  - Klebsiella bacteraemia [Recovering/Resolving]
  - Anaemia [Recovering/Resolving]
  - Overdose [Unknown]
  - Peripheral coldness [Recovering/Resolving]
  - Hepatomegaly [Recovering/Resolving]
  - Extravasation blood [Unknown]
  - Gangrene [Unknown]
